FAERS Safety Report 5268055-2 (Version None)
Quarter: 2007Q1

REPORT INFORMATION
  Report Type: 
  Country: None (occurrence: None)
  Receive Date: 20070319
  Receipt Date: 20070306
  Transmission Date: 20070707
  Serious: Yes (Other)
  Sender: FDA-Public Use
  Company Number: US-SOLVAY-00207000721

PATIENT
  Age: 38 Year
  Sex: Female

DRUGS (1)
  1. PROMETRIUM [Suspect]
     Indication: UTERINE HAEMORRHAGE
     Dosage: DAILY DOSE:  UNKNOWN
     Route: 048
     Dates: start: 20040101, end: 20040101

REACTIONS (1)
  - ABNORMAL BEHAVIOUR [None]
